FAERS Safety Report 4805868-2 (Version None)
Quarter: 2005Q4

REPORT INFORMATION
  Report Type: 
  Country: None (occurrence: None)
  Receive Date: 20051018
  Receipt Date: 20051018
  Transmission Date: 20060501
  Serious: Yes (Other)
  Sender: FDA-Public Use
  Company Number: None

PATIENT
  Age: 33 Year
  Sex: Female
  Weight: 58.0604 kg

DRUGS (1)
  1. ZYRTEC [Suspect]
     Indication: URTICARIA
     Dosage: 10 MG DAILY PO
     Route: 048
     Dates: start: 19971201, end: 20051015

REACTIONS (2)
  - DRUG DEPENDENCE [None]
  - PRURITUS [None]
